FAERS Safety Report 9538219 (Version 2)
Quarter: 2013Q4

REPORT INFORMATION
  Report Type: Spontaneous
  Country: US (occurrence: US)
  Receive Date: 20130920
  Receipt Date: 20131023
  Transmission Date: 20140711
  Serious: Yes (Other)
  Sender: FDA-Public Use
  Company Number: US-ROCHE-1276956

PATIENT
  Sex: Female

DRUGS (5)
  1. PEGASYS [Suspect]
     Indication: CHRONIC HEPATITIS C
     Route: 065
     Dates: start: 2005
  2. PEGASYS [Suspect]
     Route: 065
     Dates: start: 20130923
  3. RIBAVIRIN [Suspect]
     Indication: CHRONIC HEPATITIS C
     Route: 065
  4. RIBAVIRIN [Suspect]
     Route: 065
     Dates: start: 20130923
  5. TELAPREVIR [Suspect]
     Indication: CHRONIC HEPATITIS C
     Route: 065
     Dates: start: 20130923

REACTIONS (3)
  - Hepatic failure [Unknown]
  - Viral load increased [Unknown]
  - Fatigue [Unknown]
